FAERS Safety Report 5787336-7 (Version None)
Quarter: 2008Q2

REPORT INFORMATION
  Report Type: 
  Country: None (occurrence: None)
  Receive Date: 20080625
  Receipt Date: 20071212
  Transmission Date: 20081010
  Serious: No
  Sender: FDA-Public Use
  Company Number: US-ASTRAZENECA-2007UW20067

PATIENT
  Age: 54 Year
  Sex: Female
  Weight: 56.7 kg

DRUGS (3)
  1. PULMICORT FLEXHALER [Suspect]
     Indication: ASTHMA
     Route: 055
     Dates: start: 20070301
  2. PULMICORT FLEXHALER [Suspect]
     Indication: SARCOIDOSIS
     Route: 055
     Dates: start: 20070301
  3. IMITREX [Concomitant]

REACTIONS (2)
  - JOINT SWELLING [None]
  - PHARYNGOLARYNGEAL PAIN [None]
